FAERS Safety Report 20780615 (Version 1)
Quarter: 2022Q2

REPORT INFORMATION
  Report Type: Spontaneous
  Country: US (occurrence: US)
  Receive Date: 20220504
  Receipt Date: 20220504
  Transmission Date: 20220721
  Serious: Yes (Other)
  Sender: FDA-Public Use
  Company Number: US-BRISTOL-MYERS SQUIBB COMPANY-2022-027567

PATIENT
  Age: 68 Year
  Sex: Male

DRUGS (13)
  1. REVLIMID [Suspect]
     Active Substance: LENALIDOMIDE
     Indication: Plasma cell myeloma
     Dosage: 3 TIMES WEEK
     Route: 048
     Dates: start: 20201217
  2. TRIAMCINOLONE [Concomitant]
     Active Substance: TRIAMCINOLONE
  3. ACETAMINOPHEN\HYDROCODONE [Concomitant]
     Active Substance: ACETAMINOPHEN\HYDROCODONE
     Dosage: 7.5-325 T
  4. LORATADINE [Concomitant]
     Active Substance: LORATADINE
  5. MELATONIN [Concomitant]
     Active Substance: MELATONIN
  6. XARELTO [Concomitant]
     Active Substance: RIVAROXABAN
  7. ZOMETA [Concomitant]
     Active Substance: ZOLEDRONIC ACID
     Dosage: 4MG/5ML
  8. CYMBALTA [Concomitant]
     Active Substance: DULOXETINE HYDROCHLORIDE
  9. ALPRAZOLAM [Concomitant]
     Active Substance: ALPRAZOLAM
  10. FAMOTIDINE [Concomitant]
     Active Substance: FAMOTIDINE
  11. ONDANSETRON [Concomitant]
     Active Substance: ONDANSETRON
  12. ADDERALL [Concomitant]
     Active Substance: AMPHETAMINE ASPARTATE\AMPHETAMINE SULFATE\DEXTROAMPHETAMINE SACCHARATE\DEXTROAMPHETAMINE SULFATE
  13. DARZALEX [Concomitant]
     Active Substance: DARATUMUMAB
     Dosage: 100MG/5ML

REACTIONS (4)
  - Fatigue [Unknown]
  - Asthenia [Unknown]
  - Neuropathy peripheral [Unknown]
  - Off label use [Unknown]
